FAERS Safety Report 10058241 (Version 2)
Quarter: 2014Q2

REPORT INFORMATION
  Report Type: Spontaneous
  Country: RU (occurrence: RU)
  Receive Date: 20140404
  Receipt Date: 20140418
  Transmission Date: 20141212
  Serious: Yes (Other)
  Sender: FDA-Public Use
  Company Number: RU-JNJFOC-20140319028

PATIENT
  Age: 51 Year
  Sex: Female
  Weight: 69 kg

DRUGS (11)
  1. REMICADE [Suspect]
     Indication: PSORIATIC ARTHROPATHY
     Dosage: 3 PACKS OF 100 MG, 5TH INFUSION
     Route: 042
     Dates: start: 20140122, end: 20140122
  2. REMICADE [Suspect]
     Indication: PSORIATIC ARTHROPATHY
     Dosage: 3 PACKS OF 100 MG, 2ND INFUSION
     Route: 042
     Dates: start: 20130904
  3. REMICADE [Suspect]
     Indication: PSORIATIC ARTHROPATHY
     Dosage: 3 PACKS OF 100 MG, 3RD INFUSION
     Route: 042
     Dates: start: 20131002
  4. REMICADE [Suspect]
     Indication: PSORIATIC ARTHROPATHY
     Dosage: 3 PACKS OF 100 MG, 4TH INFUSION
     Route: 042
     Dates: start: 20131127
  5. REMICADE [Suspect]
     Indication: PSORIATIC ARTHROPATHY
     Dosage: 3 PACKS OF 100MG, 1ST INFUSION
     Route: 042
     Dates: start: 20130820
  6. REMICADE [Suspect]
     Indication: PSORIASIS
     Dosage: 3 PACKS OF 100MG, 1ST INFUSION
     Route: 042
     Dates: start: 20130820
  7. REMICADE [Suspect]
     Indication: PSORIASIS
     Dosage: 3 PACKS OF 100 MG, 2ND INFUSION
     Route: 042
     Dates: start: 20130904
  8. REMICADE [Suspect]
     Indication: PSORIASIS
     Dosage: 3 PACKS OF 100 MG, 3RD INFUSION
     Route: 042
     Dates: start: 20131002
  9. REMICADE [Suspect]
     Indication: PSORIASIS
     Dosage: 3 PACKS OF 100 MG, 4TH INFUSION
     Route: 042
     Dates: start: 20131127
  10. REMICADE [Suspect]
     Indication: PSORIASIS
     Dosage: 3 PACKS OF 100 MG, 5TH INFUSION
     Route: 042
     Dates: start: 20140122, end: 20140122
  11. METHOTREXATE [Concomitant]
     Route: 030

REACTIONS (1)
  - Pulmonary tuberculosis [Unknown]
